FAERS Safety Report 19697627 (Version 2)
Quarter: 2021Q3

REPORT INFORMATION
  Report Type: Spontaneous
  Country: FR (occurrence: FR)
  Receive Date: 20210813
  Receipt Date: 20210818
  Transmission Date: 20211014
  Serious: Yes (Hospitalization)
  Sender: FDA-Public Use
  Company Number: FR-ROCHE-2888840

PATIENT
  Age: 78 Year
  Sex: Female
  Weight: 54 kg

DRUGS (10)
  1. RITUXIMAB. [Suspect]
     Active Substance: RITUXIMAB
     Indication: CHRONIC LYMPHOCYTIC LEUKAEMIA
     Dosage: 375 MG / M2 THEN INCREASED TO 500 MG / M2
     Route: 041
     Dates: start: 20200701, end: 20201118
  2. BARACLUDE [Concomitant]
     Active Substance: ENTECAVIR
  3. ZYLORIC [Concomitant]
     Active Substance: ALLOPURINOL
  4. SMECTA [Concomitant]
     Active Substance: MONTMORILLONITE
  5. WELLVONE [Concomitant]
     Active Substance: ATOVAQUONE
  6. LOPERAMIDE HYDROCHLORIDE. [Concomitant]
     Active Substance: LOPERAMIDE HYDROCHLORIDE
  7. SPIRONOLACTONE. [Concomitant]
     Active Substance: SPIRONOLACTONE
  8. VENCLYXTO [Suspect]
     Active Substance: VENETOCLAX
     Indication: CHRONIC LYMPHOCYTIC LEUKAEMIA
     Dosage: 400 MG THEN DECREASED TO 200 MG
     Route: 048
     Dates: start: 20200518
  9. GANFORT [Concomitant]
     Active Substance: BIMATOPROST\TIMOLOL
     Dosage: 300 MICROGRAMS / ML + 5 MG / ML, EYE DROPS, SOLUTION
  10. ZELITREX [Concomitant]
     Active Substance: VALACYCLOVIR HYDROCHLORIDE

REACTIONS (1)
  - Ascites [Recovered/Resolved]

NARRATIVE: CASE EVENT DATE: 20200826
